FAERS Safety Report 4279505-2 (Version None)
Quarter: 2004Q1

REPORT INFORMATION
  Report Type: 
  Country: None (occurrence: None)
  Receive Date: 20040123
  Receipt Date: 20040112
  Transmission Date: 20041129
  Serious: Yes (Other)
  Sender: FDA-Public Use
  Company Number: US064194 NLWYE410618NOV03

PATIENT
  Age: 53 Year

DRUGS (4)
  1. ENBREL [Suspect]
     Indication: RHEUMATOID ARTHRITIS
     Dosage: 25 MG, 2 IN 1 WEEKS, SC
     Route: 058
     Dates: start: 20031001, end: 20031001
  2. METHOTREXATE [Concomitant]
  3. PREDNISONE [Concomitant]
  4. INFLUENZA VACCINE [Concomitant]

REACTIONS (6)
  - APHASIA [None]
  - BURSITIS [None]
  - FEELING ABNORMAL [None]
  - INFLUENZA IMMUNISATION [None]
  - PALPITATIONS [None]
  - PARALYSIS [None]
